FAERS Safety Report 7861602-3 (Version None)
Quarter: 2011Q4

REPORT INFORMATION
  Report Type: 
  Country: None (occurrence: None)
  Receive Date: 20111027
  Receipt Date: 20111019
  Transmission Date: 20120403
  Serious: Yes (Other)
  Sender: FDA-Public Use
  Company Number: US-BAXTER-2011BH032972

PATIENT
  Age: 40 Year
  Sex: Female

DRUGS (2)
  1. GAMMAGARD LIQUID [Suspect]
     Indication: MOTOR NEURONE DISEASE
     Route: 065
     Dates: start: 20030101, end: 20110301
  2. GAMMAGARD LIQUID [Suspect]
     Indication: OFF LABEL USE
     Route: 065
     Dates: start: 20030101, end: 20110301

REACTIONS (5)
  - THYROID DISORDER [None]
  - MULTIMORBIDITY [None]
  - RENAL DISORDER [None]
  - BLADDER DISORDER [None]
  - INFECTION [None]
